FAERS Safety Report 19172698 (Version 3)
Quarter: 2023Q2

REPORT INFORMATION
  Report Type: Report from Study
  Country: CA (occurrence: CA)
  Receive Date: 20210423
  Receipt Date: 20230510
  Transmission Date: 20230721
  Serious: Yes (Hospitalization, Other)
  Sender: FDA-Public Use
  Company Number: CA-HLS-202107368

PATIENT
  Age: 67 Year
  Sex: Male
  Weight: 77 kg

DRUGS (1)
  1. CLOZARIL [Suspect]
     Active Substance: CLOZAPINE
     Indication: Schizoaffective disorder
     Dosage: 25 MG AT SUPPER + 200MG AT BEDTIME , DOSE REDUCTION AND THEN STOPPED
     Route: 048
     Dates: start: 20140612, end: 202302

REACTIONS (5)
  - Intestinal obstruction [Recovered/Resolved with Sequelae]
  - White blood cell count increased [Unknown]
  - Neutrophil count increased [Unknown]
  - Off label use [Unknown]
  - Postoperative ileus [Not Recovered/Not Resolved]

NARRATIVE: CASE EVENT DATE: 20220117
